FAERS Safety Report 19911455 (Version 5)
Quarter: 2022Q4

REPORT INFORMATION
  Report Type: Spontaneous
  Country: US (occurrence: US)
  Receive Date: 20211004
  Receipt Date: 20221201
  Transmission Date: 20230112
  Serious: Yes (Other)
  Sender: FDA-Public Use
  Company Number: US-TEVA-2021-US-1960468

PATIENT
  Age: 63 Year
  Sex: Female

DRUGS (2)
  1. PROAIR HFA [Suspect]
     Active Substance: ALBUTEROL SULFATE
     Indication: Product used for unknown indication
     Route: 065
  2. QVAR REDIHALER [Suspect]
     Active Substance: BECLOMETHASONE DIPROPIONATE
     Indication: Product used for unknown indication
     Route: 065

REACTIONS (9)
  - Spinal fracture [Unknown]
  - Road traffic accident [Unknown]
  - Asthma [Unknown]
  - Device allergy [Unknown]
  - Gait inability [Unknown]
  - Oropharyngeal pain [Unknown]
  - Sciatica [Unknown]
  - Back pain [Unknown]
  - Adverse event [Unknown]
